FAERS Safety Report 24427931 (Version 7)
Quarter: 2025Q4

REPORT INFORMATION
  Report Type: Report from Study
  Country: None (occurrence: JP)
  Receive Date: 20241011
  Receipt Date: 20251202
  Transmission Date: 20260118
  Serious: Yes (Death, Hospitalization)
  Sender: ALNYLAM PHARMACEUTICALS
  Company Number: JP-ALNYLAM PHARMACEUTICALS, INC.-ALN-2024-004444

PATIENT
  Age: 69 Year
  Weight: 45 kg

DRUGS (11)
  1. AMVUTTRA [Suspect]
     Active Substance: VUTRISIRAN
     Indication: Hereditary neuropathic amyloidosis
     Dosage: 25 MILLIGRAM, ONCE EVERY 3 MONTHS
  2. AMVUTTRA [Suspect]
     Active Substance: VUTRISIRAN
     Dosage: 25 MILLIGRAM, ONCE EVERY 3 MONTHS
  3. AMVUTTRA [Suspect]
     Active Substance: VUTRISIRAN
     Dosage: 25 MILLIGRAM, ONCE EVERY 3 MONTHS
  4. AZOSEMIDE [Concomitant]
     Active Substance: AZOSEMIDE
     Indication: Hereditary neuropathic amyloidosis
     Dosage: 30 MILLIGRAM/DAY
  5. AZOSEMIDE [Concomitant]
     Active Substance: AZOSEMIDE
     Indication: Product used for unknown indication
     Dosage: 15 MILLIGRAM/DAY
  6. AZOSEMIDE [Concomitant]
     Active Substance: AZOSEMIDE
     Dosage: 15 MILLIGRAM, QOD
  7. EPLERENONE [Concomitant]
     Active Substance: EPLERENONE
     Indication: Hereditary neuropathic amyloidosis
     Dosage: 25 MILLIGRAM/DAY
  8. CLOPIDOGREL [Concomitant]
     Active Substance: CLOPIDOGREL BISULFATE
     Indication: Angina pectoris
     Dosage: 75 MILLIGRAM/DAY
  9. CLOPIDOGREL [Concomitant]
     Active Substance: CLOPIDOGREL BISULFATE
     Indication: Coronary angioplasty
  10. Rosuzet hd [Concomitant]
     Indication: Angina pectoris
     Dosage: 1 TABLET (10MG/5MG)/DAY
  11. Rosuzet hd [Concomitant]
     Indication: Dyslipidaemia

REACTIONS (8)
  - Marasmus [Fatal]
  - Orthostatic hypotension [Recovering/Resolving]
  - Fall [Recovering/Resolving]
  - Fibula fracture [Recovering/Resolving]
  - Cardiac failure [Recovering/Resolving]
  - Blood pressure decreased [Unknown]
  - Dysuria [Not Recovered/Not Resolved]
  - Urinary tract infection [Recovering/Resolving]
